FAERS Safety Report 13318125 (Version 1)
Quarter: 2017Q1

REPORT INFORMATION
  Report Type: Spontaneous
  Country: US (occurrence: US)
  Receive Date: 20170309
  Receipt Date: 20170309
  Transmission Date: 20170428
  Serious: Yes (Disabling)
  Sender: FDA-Public Use
  Company Number: None

PATIENT
  Age: 59 Year
  Sex: Male
  Weight: 135 kg

DRUGS (18)
  1. BENAZEPRIL [Concomitant]
     Active Substance: BENAZEPRIL HYDROCHLORIDE
  2. FISH OIL [Concomitant]
     Active Substance: FISH OIL
  3. LANTUS HUMALOG [Concomitant]
  4. CENTRUM SILVER [Concomitant]
     Active Substance: MINERALS\VITAMINS
  5. AVASTIN [Suspect]
     Active Substance: BEVACIZUMAB
     Indication: PRODUCT USED FOR UNKNOWN INDICATION
     Route: 047
     Dates: start: 20160406, end: 20170126
  6. VITAMIN B12 [Concomitant]
     Active Substance: CYANOCOBALAMIN
  7. WARFARIN [Concomitant]
     Active Substance: WARFARIN
  8. VENTOLIN [Concomitant]
     Active Substance: ALBUTEROL SULFATE
  9. TAMSULOSIN [Concomitant]
     Active Substance: TAMSULOSIN
  10. AMLODIPINE [Concomitant]
     Active Substance: AMLODIPINE BESYLATE
  11. CPAP [Concomitant]
     Active Substance: DEVICE
  12. ZOLPEDIM [Concomitant]
  13. CARVEDILOL. [Concomitant]
     Active Substance: CARVEDILOL
  14. REFRESH [Concomitant]
     Active Substance: UNSPECIFIED INGREDIENT
  15. POTASSIUM [Concomitant]
     Active Substance: POTASSIUM
  16. VITAMIN D3 [Concomitant]
     Active Substance: CHOLECALCIFEROL
  17. FUROSEMIDE. [Concomitant]
     Active Substance: FUROSEMIDE
  18. NATURAL LAXATIVE [Concomitant]
     Active Substance: SENNOSIDES

REACTIONS (15)
  - Headache [None]
  - Tremor [None]
  - Constipation [None]
  - Thirst [None]
  - Heart rate increased [None]
  - Chest pain [None]
  - Blood glucose decreased [None]
  - Pain in jaw [None]
  - Eye pain [None]
  - Atrial fibrillation [None]
  - Abdominal distension [None]
  - Somnolence [None]
  - Hypersensitivity [None]
  - Hypoaesthesia [None]
  - Back pain [None]

NARRATIVE: CASE EVENT DATE: 20170126
